FAERS Safety Report 8793871 (Version 5)
Quarter: 2013Q3

REPORT INFORMATION
  Report Type: Spontaneous
  Country: US (occurrence: US)
  Receive Date: 20120918
  Receipt Date: 20130726
  Transmission Date: 20140515
  Serious: Yes (Other)
  Sender: FDA-Public Use
  Company Number: US-009507513-1209USA004196

PATIENT
  Sex: Male

DRUGS (3)
  1. PEGINTRON [Suspect]
     Indication: HEPATITIS C
     Dosage: REDIPEN
     Route: 065
     Dates: start: 20120818, end: 20130713
  2. REBETOL [Suspect]
     Dosage: UNK
     Route: 048
     Dates: start: 20120818, end: 20130713
  3. VICTRELIS [Suspect]
     Indication: HEPATITIS C
     Dosage: UNK
     Route: 048
     Dates: start: 20120915, end: 20130713

REACTIONS (46)
  - Delusion [Unknown]
  - Syncope [Unknown]
  - Loss of consciousness [Unknown]
  - Vision blurred [Unknown]
  - Chills [Unknown]
  - Hyperhidrosis [Unknown]
  - Abdominal pain [Unknown]
  - Dizziness [Unknown]
  - Dysgeusia [Unknown]
  - Myalgia [Unknown]
  - Injection site erythema [Unknown]
  - Fatigue [Unknown]
  - Sleep disorder [Unknown]
  - Visual impairment [Unknown]
  - Headache [Unknown]
  - Disturbance in attention [Unknown]
  - Rash [Unknown]
  - Fatigue [Unknown]
  - Eye disorder [Unknown]
  - Memory impairment [Unknown]
  - Dizziness [Unknown]
  - Balance disorder [Unknown]
  - Diarrhoea [Unknown]
  - Nocturia [Unknown]
  - Haematochezia [Unknown]
  - Rash pruritic [Recovering/Resolving]
  - Anxiety [Unknown]
  - Palpitations [Unknown]
  - Anaemia [Unknown]
  - Dry skin [Unknown]
  - Pruritus [Unknown]
  - Rash [Unknown]
  - Chills [Unknown]
  - Nausea [Unknown]
  - Dizziness [Unknown]
  - Fatigue [Unknown]
  - Vision blurred [Unknown]
  - Alopecia [Unknown]
  - Irritability [Unknown]
  - Dysgeusia [Unknown]
  - Confusional state [Unknown]
  - Rash [Recovering/Resolving]
  - Asthenia [Unknown]
  - Vision blurred [Recovering/Resolving]
  - Dysgeusia [Recovering/Resolving]
  - Musculoskeletal disorder [Unknown]
